FAERS Safety Report 23049568 (Version 1)
Quarter: 2023Q4

REPORT INFORMATION
  Report Type: Other
  Country: None (occurrence: JP)
  Receive Date: 20231010
  Receipt Date: 20231010
  Transmission Date: 20240110
  Serious: Yes (Hospitalization)
  Sender: FDA-Public Use
  Company Number: JP-OrBion Pharmaceuticals Private Limited-2146844

PATIENT
  Age: 78 Year
  Sex: Female

DRUGS (2)
  1. OLANZAPINE [Suspect]
     Active Substance: OLANZAPINE
     Indication: Schizophrenia
     Route: 065
  2. VALPROIC ACID [Concomitant]
     Active Substance: VALPROIC ACID
     Route: 065

REACTIONS (12)
  - Respiratory depression [Recovering/Resolving]
  - Coma scale abnormal [Recovering/Resolving]
  - Body temperature decreased [Recovering/Resolving]
  - Hypotension [Recovering/Resolving]
  - Bundle branch block right [Recovering/Resolving]
  - Cardiomegaly [Recovering/Resolving]
  - Cardiothoracic ratio increased [Recovering/Resolving]
  - Respiratory acidosis [Recovering/Resolving]
  - Metabolic alkalosis [Recovering/Resolving]
  - Cardiac failure congestive [Recovering/Resolving]
  - Renin decreased [Recovering/Resolving]
  - Blood aldosterone decreased [Recovering/Resolving]
